FAERS Safety Report 16923568 (Version 1)
Quarter: 2019Q4

REPORT INFORMATION
  Report Type: Spontaneous
  Country: US (occurrence: US)
  Receive Date: 20191016
  Receipt Date: 20191016
  Transmission Date: 20200122
  Serious: No
  Sender: FDA-Public Use
  Company Number: US-SUNOVION-2019SUN004251

PATIENT
  Sex: Male
  Weight: 90.7 kg

DRUGS (3)
  1. ZONISAMIDE UNKNOWN FORMULATION [Suspect]
     Active Substance: ZONISAMIDE
     Dosage: UNKNOWN
     Route: 065
  2. ZONISAMIDE UNKNOWN FORMULATION [Suspect]
     Active Substance: ZONISAMIDE
     Dosage: UNKNOWN
     Route: 065
  3. LATUDA [Suspect]
     Active Substance: LURASIDONE HYDROCHLORIDE
     Indication: SCHIZOAFFECTIVE DISORDER
     Dosage: UNKNOWN
     Route: 048
     Dates: start: 201811

REACTIONS (3)
  - Off label use [Unknown]
  - Weight increased [Recovering/Resolving]
  - Weight decreased [Unknown]
